FAERS Safety Report 4995021-4 (Version None)
Quarter: 2006Q2

REPORT INFORMATION
  Report Type: 
  Country: None (occurrence: None)
  Receive Date: 20060508
  Receipt Date: 20051129
  Transmission Date: 20061013
  Serious: Yes (Other)
  Sender: FDA-Public Use
  Company Number: JP-JPN-A20052976

PATIENT
  Age: 16 Year
  Sex: Male
  Weight: 50 kg

DRUGS (4)
  1. FLUTIDE [Suspect]
     Indication: ASTHMA
     Dosage: 200MCG TWICE PER DAY
     Route: 055
     Dates: start: 20010607
  2. THEOPHYLLINE [Concomitant]
     Indication: ASTHMA
     Dosage: 400MG PER DAY
     Route: 048
     Dates: start: 20011119
  3. MONTELUKAST SODIUM [Concomitant]
     Indication: ASTHMA
     Dosage: 10MG PER DAY
     Route: 048
     Dates: start: 20030529
  4. SALMETEROL XINAFOATE [Concomitant]
     Indication: ASTHMA
     Dosage: 100MCG PER DAY
     Route: 055
     Dates: start: 20030529

REACTIONS (2)
  - ADRENAL INSUFFICIENCY [None]
  - BLOOD CORTICOTROPHIN ABNORMAL [None]
